FAERS Safety Report 17039860 (Version 1)
Quarter: 2019Q4

REPORT INFORMATION
  Report Type: Spontaneous
  Country: NL (occurrence: NL)
  Receive Date: 20191116
  Receipt Date: 20191116
  Transmission Date: 20200122
  Serious: Yes (Other)
  Sender: FDA-Public Use
  Company Number: NL-AUROBINDO-AUR-APL-2019-073579

PATIENT
  Age: 42 Year
  Sex: Male
  Weight: 85 kg

DRUGS (3)
  1. PARACETAMOL [Concomitant]
     Active Substance: ACETAMINOPHEN
     Indication: PRODUCT USED FOR UNKNOWN INDICATION
     Dosage: ONREGEMATIG
     Route: 065
  2. THYRAX [Concomitant]
     Active Substance: LEVOTHYROXINE
     Indication: PRODUCT USED FOR UNKNOWN INDICATION
     Dosage: 200 MICROGRAM, ONCE A DAY (OP DAGELIJKSE BASIS OOK THYRAX)
     Route: 065
  3. AMOXICILLIN+CLAVULANIC ACID FILM COATED TABLETS 500/125 MG [Suspect]
     Active Substance: AMOXICILLIN\CLAVULANIC ACID
     Indication: FUNGAL INFECTION
     Dosage: 1 DOSAGE FORM, 3 TIMES A DAY
     Route: 048
     Dates: start: 20191007

REACTIONS (1)
  - Blindness transient [Recovered/Resolved]

NARRATIVE: CASE EVENT DATE: 20191010
